FAERS Safety Report 7703957-6 (Version None)
Quarter: 2011Q3

REPORT INFORMATION
  Report Type: 
  Country: None (occurrence: None)
  Receive Date: 20110823
  Receipt Date: 20110816
  Transmission Date: 20111222
  Serious: Yes (Hospitalization, Other)
  Sender: FDA-Public Use
  Company Number: JP-ROCHE-797860

PATIENT
  Sex: Female
  Weight: 47 kg

DRUGS (4)
  1. CELECOXIB [Suspect]
     Indication: BACK PAIN
     Route: 048
     Dates: start: 20100427
  2. AVASTIN [Suspect]
     Indication: COLON CANCER METASTATIC
     Route: 041
     Dates: start: 20100816, end: 20110201
  3. NIZATIDINE [Concomitant]
     Route: 048
     Dates: start: 20100927
  4. PROMAC [Concomitant]
     Route: 048
     Dates: start: 20100927

REACTIONS (4)
  - PELVIC ABSCESS [None]
  - INFECTIOUS PERITONITIS [None]
  - ILEAL PERFORATION [None]
  - BACK PAIN [None]
